FAERS Safety Report 18522367 (Version 1)
Quarter: 2020Q4

REPORT INFORMATION
  Report Type: Spontaneous
  Country: US (occurrence: US)
  Receive Date: 20201119
  Receipt Date: 20201119
  Transmission Date: 20210114
  Serious: Yes (Hospitalization)
  Sender: FDA-Public Use
  Company Number: None

PATIENT
  Age: 61 Year
  Sex: Male
  Weight: 81.6 kg

DRUGS (2)
  1. LEUPROLIDE ACETATE. [Suspect]
     Active Substance: LEUPROLIDE ACETATE
     Dates: end: 20200806
  2. CASODEX [Suspect]
     Active Substance: BICALUTAMIDE
     Dates: end: 20191026

REACTIONS (2)
  - Therapy interrupted [None]
  - Pulmonary embolism [None]

NARRATIVE: CASE EVENT DATE: 20201102
